FAERS Safety Report 10161897 (Version 1)
Quarter: 2014Q2

REPORT INFORMATION
  Report Type: Spontaneous
  Country: CA (occurrence: CA)
  Receive Date: 20140509
  Receipt Date: 20140509
  Transmission Date: 20141212
  Serious: Yes (Other)
  Sender: FDA-Public Use
  Company Number: CA-MERCK-1405CAN004198

PATIENT
  Age: 52 Year
  Sex: Female

DRUGS (3)
  1. JANUVIA [Suspect]
     Dosage: UNK
     Route: 065
  2. GLYBURIDE [Concomitant]
     Dosage: UNK
     Route: 065
  3. METFORMIN [Concomitant]
     Dosage: UNK
     Route: 065

REACTIONS (1)
  - Blood glucose increased [Unknown]
